FAERS Safety Report 9786446 (Version 1)
Quarter: 2013Q4

REPORT INFORMATION
  Report Type: Spontaneous
  Country: PH (occurrence: PH)
  Receive Date: 20131227
  Receipt Date: 20131227
  Transmission Date: 20140711
  Serious: Yes (Hospitalization)
  Sender: FDA-Public Use
  Company Number: PH-B.I. PHARMACEUTICALS,INC./RIDGEFIELD-2013-BI-43437RP

PATIENT
  Age: 8 Month
  Sex: 0

DRUGS (1)
  1. COMBIVENT [Suspect]
     Indication: ASTHMA
     Dosage: FORMULATION:UNIT DOSE VIAL, STRENGTH: 500MCG/2.5MG
     Route: 055

REACTIONS (2)
  - Erythema [Recovered/Resolved]
  - Off label use [Recovered/Resolved]
